FAERS Safety Report 22297195 (Version 1)
Quarter: 2023Q2

REPORT INFORMATION
  Report Type: Spontaneous
  Country: US (occurrence: US)
  Receive Date: 20230509
  Receipt Date: 20230509
  Transmission Date: 20230721
  Serious: No
  Sender: FDA-Public Use
  Company Number: US-NOVAST LABORATORIES INC.-2022NOV000278

PATIENT

DRUGS (2)
  1. LARIN 1.5/30 [Suspect]
     Active Substance: ETHINYL ESTRADIOL\NORETHINDRONE ACETATE
     Indication: Contraception
     Dosage: ONE TABLET A DAY
     Route: 048
     Dates: start: 20220611
  2. LARIN 1.5/30 [Suspect]
     Active Substance: ETHINYL ESTRADIOL\NORETHINDRONE ACETATE
     Indication: Menstrual cycle management

REACTIONS (3)
  - Medication error [Unknown]
  - Product physical issue [Unknown]
  - Product use in unapproved indication [Unknown]
